FAERS Safety Report 11287902 (Version 3)
Quarter: 2017Q3

REPORT INFORMATION
  Report Type: Spontaneous
  Country: US (occurrence: US)
  Receive Date: 20150721
  Receipt Date: 20170920
  Transmission Date: 20171127
  Serious: Yes (Hospitalization, Other)
  Sender: FDA-Public Use
  Company Number: US-AUROBINDO-AUR-APL-2015-05642

PATIENT
  Age: 31 Year
  Sex: Female

DRUGS (3)
  1. OMEPRAZOLE. [Concomitant]
     Active Substance: OMEPRAZOLE
     Indication: DYSPEPSIA
     Dosage: UNK, AS NECESSARY
     Route: 065
  2. HYDROCHLOROTHIAZIDE 25 MG [Suspect]
     Active Substance: HYDROCHLOROTHIAZIDE
     Indication: HYPERTENSION
     Dosage: 25 MG, UNK
     Route: 065
  3. METFORMIN [Concomitant]
     Active Substance: METFORMIN HYDROCHLORIDE
     Indication: POLYCYSTIC OVARIES
     Dosage: UNK
     Route: 065

REACTIONS (9)
  - Leukocytosis [Recovered/Resolved]
  - Abdominal pain upper [Recovered/Resolved]
  - Hepatic steatosis [Recovered/Resolved]
  - Abdominal tenderness [Recovered/Resolved]
  - Pancreatitis acute [Recovered/Resolved]
  - Nausea [Recovered/Resolved]
  - Pain [Recovered/Resolved]
  - Vomiting [Recovered/Resolved]
  - Neutrophil count increased [Recovered/Resolved]
